FAERS Safety Report 6599385-X (Version None)
Quarter: 2010Q1

REPORT INFORMATION
  Report Type: 
  Country: None (occurrence: None)
  Receive Date: 20100224
  Receipt Date: 20091204
  Transmission Date: 20100710
  Serious: No
  Sender: FDA-Public Use
  Company Number: A0833891A

PATIENT
  Sex: Male

DRUGS (2)
  1. ARZERRA [Suspect]
     Route: 042
     Dates: start: 20091204
  2. NO CONCURRENT MEDICATION [Concomitant]

REACTIONS (1)
  - URTICARIA [None]
